FAERS Safety Report 8295781-3 (Version None)
Quarter: 2012Q2

REPORT INFORMATION
  Report Type: 
  Country: None (occurrence: None)
  Receive Date: 20120416
  Receipt Date: 20120416
  Transmission Date: 20120825
  Serious: Yes (Other)
  Sender: FDA-Public Use
  Company Number: None

PATIENT
  Sex: Female

DRUGS (2)
  1. TEMODAR [Suspect]
     Dosage: 20MG QD DAY 1-5 PO
     Route: 048
  2. TEMODAR [Suspect]
     Dosage: 250MG QD DAY1-5 PO
     Route: 048
     Dates: start: 20120301, end: 20120301

REACTIONS (12)
  - MYALGIA [None]
  - FATIGUE [None]
  - DECREASED APPETITE [None]
  - TREMOR [None]
  - BALANCE DISORDER [None]
  - CONVULSION [None]
  - FALL [None]
  - VISION BLURRED [None]
  - CONFUSIONAL STATE [None]
  - WEIGHT DECREASED [None]
  - DIPLOPIA [None]
  - AMNESIA [None]
